FAERS Safety Report 21100800 (Version 2)
Quarter: 2022Q3

REPORT INFORMATION
  Report Type: Spontaneous
  Country: US (occurrence: US)
  Receive Date: 20220719
  Receipt Date: 20220725
  Transmission Date: 20221026
  Serious: No
  Sender: FDA-Public Use
  Company Number: US-PFIZER INC-202200961122

PATIENT
  Age: 68 Year
  Sex: Female

DRUGS (1)
  1. PAXLOVID [Suspect]
     Active Substance: NIRMATRELVIR\RITONAVIR
     Indication: COVID-19 treatment
     Dosage: 250 MG, 2X/DAY (150 MG NIRMATRELVIR; 100 MG RITONAVIR) BID FOR TWO DAYS

REACTIONS (2)
  - Incorrect dose administered [Unknown]
  - Underdose [Unknown]
